FAERS Safety Report 10569655 (Version 2)
Quarter: 2014Q4

REPORT INFORMATION
  Report Type: Spontaneous
  Country: JP (occurrence: JP)
  Receive Date: 20141107
  Receipt Date: 20141107
  Transmission Date: 20150529
  Serious: Yes (Hospitalization)
  Sender: FDA-Public Use
  Company Number: JP-ORION CORPORATION ORION PHARMA-ENT 2014-0181

PATIENT
  Age: 68 Year
  Sex: Male

DRUGS (5)
  1. ENTACAPONE. [Suspect]
     Active Substance: ENTACAPONE
     Route: 048
  2. LEVODOPA-CARBIDOPA [Suspect]
     Active Substance: CARBIDOPA\LEVODOPA
     Indication: PARKINSON^S DISEASE
     Route: 048
  3. ZONISAMIDE. [Suspect]
     Active Substance: ZONISAMIDE
     Route: 048
  4. LEVODOPA-CARBIDOPA [Suspect]
     Active Substance: CARBIDOPA\LEVODOPA
     Route: 048
  5. PRAMIPEXOLE [Suspect]
     Active Substance: PRAMIPEXOLE
     Route: 048

REACTIONS (9)
  - Pain [Unknown]
  - Drug effect decreased [Recovered/Resolved]
  - Condition aggravated [Unknown]
  - Food interaction [Unknown]
  - Gait disturbance [Recovering/Resolving]
  - Pain in extremity [Unknown]
  - Tremor [Unknown]
  - Muscle rigidity [Unknown]
  - Movement disorder [Unknown]
